FAERS Safety Report 7843361-3 (Version None)
Quarter: 2011Q4

REPORT INFORMATION
  Report Type: 
  Country: None (occurrence: None)
  Receive Date: 20111025
  Receipt Date: 20111020
  Transmission Date: 20120403
  Serious: Yes (Life-Threatening, Hospitalization)
  Sender: FDA-Public Use
  Company Number: FR-ROCHE-802956

PATIENT
  Sex: Male
  Weight: 110 kg

DRUGS (5)
  1. XELODA [Suspect]
     Indication: COLON CANCER
     Dosage: 1250G/M2
     Route: 048
     Dates: start: 20110510, end: 20110620
  2. PREVISCAN [Concomitant]
  3. REPAGLINIDE [Concomitant]
  4. BISOPROLOL FUMARATE [Concomitant]
  5. PRAVASTATIN [Concomitant]

REACTIONS (4)
  - PLEURAL EFFUSION [None]
  - NEOPLASM [None]
  - VENTRICULAR TACHYCARDIA [None]
  - CARDIOMYOPATHY [None]
